FAERS Safety Report 7179773-3 (Version None)
Quarter: 2010Q4

REPORT INFORMATION
  Report Type: 
  Country: None (occurrence: None)
  Receive Date: 20101221
  Receipt Date: 20100510
  Transmission Date: 20110411
  Serious: No
  Sender: FDA-Public Use
  Company Number: US-BRISTOL-MYERS SQUIBB COMPANY-15106107

PATIENT
  Sex: Female

DRUGS (2)
  1. QUESTRAN [Suspect]
     Dosage: 22JAN INTERRUPTED;RESTARTED ON 20FEB;22FEB REDUCED DOSE TO 1/DAY;I30MAR INTERRUPTED;13APR:RESUMED
     Route: 065
  2. VITAMIN B [Concomitant]

REACTIONS (3)
  - CONSTIPATION [None]
  - RASH PRURITIC [None]
  - SWELLING [None]
